FAERS Safety Report 8131406-5 (Version None)
Quarter: 2012Q1

REPORT INFORMATION
  Report Type: 
  Country: None (occurrence: None)
  Receive Date: 20120213
  Receipt Date: 20120201
  Transmission Date: 20120608
  Serious: Yes (Disabling)
  Sender: FDA-Public Use
  Company Number: CA-JNJFOC-20111105120

PATIENT
  Sex: Female
  Weight: 49.9 kg

DRUGS (4)
  1. AMITRIPTYLINE HCL [Concomitant]
     Indication: PAIN
     Route: 048
  2. NUCYNTA [Suspect]
     Indication: BACK PAIN
     Route: 065
     Dates: start: 20110928
  3. AMITRIPTYLINE HCL [Concomitant]
     Indication: SLEEP DISORDER
     Route: 048
  4. OXYCODONE HCL AND ACETAMINOPHEN [Concomitant]
     Indication: PAIN
     Route: 048

REACTIONS (1)
  - DERMATITIS [None]
